FAERS Safety Report 9949236 (Version 1)
Quarter: 2014Q1

REPORT INFORMATION
  Report Type: Spontaneous
  Country: US (occurrence: None)
  Receive Date: 20140122
  Receipt Date: 20140122
  Transmission Date: 20141002
  Serious: Yes (Other)
  Sender: FDA-Public Use
  Company Number: AEGR000216

PATIENT
  Age: 76 Year
  Sex: Male
  Weight: 71.7 kg

DRUGS (9)
  1. JUXTAPID [Suspect]
     Indication: TYPE IIA HYPERLIPIDAEMIA
     Route: 048
     Dates: start: 201305, end: 201310
  2. FENOFIBRATE (FENOFIBRATE) (FENOFIBRATE) [Concomitant]
  3. CELEBREX (CELECOXIB) [Concomitant]
  4. PROTONIX (PANTOPRAZOLE SODIUM SESQUIHYDRATE) [Concomitant]
  5. VICODIN (HYDROCODONE BITARTRATE, PARACETAMOL) [Concomitant]
  6. ALVESCO (CICLESONIDE) [Concomitant]
  7. XOPENEX (LEVOSALBUTAMOL HYDROCHLORIDE) [Concomitant]
  8. SKELAXIN (METAXALONE) [Concomitant]
  9. AMOXICILLIN (AMOXICILLIN TRIHYDRATE) [Concomitant]

REACTIONS (1)
  - Myalgia [None]
